FAERS Safety Report 8368103-7 (Version None)
Quarter: 2012Q2

REPORT INFORMATION
  Report Type: 
  Country: None (occurrence: None)
  Receive Date: 20120517
  Receipt Date: 20120508
  Transmission Date: 20120825
  Serious: Yes (Other)
  Sender: FDA-Public Use
  Company Number: US-B.I. PHARMACEUTICALS,INC./RIDGEFIELD-2012-BP-10335BP

PATIENT
  Sex: Male
  Weight: 79.38 kg

DRUGS (4)
  1. FLOMAX [Suspect]
     Indication: BENIGN PROSTATIC HYPERPLASIA
     Dates: start: 20110101, end: 20120306
  2. ANDROGEL [Suspect]
     Indication: BLOOD TESTOSTERONE DECREASED
     Dosage: 5 G
     Route: 065
     Dates: start: 20090101, end: 20120319
  3. XANAX [Suspect]
     Indication: TINNITUS
     Dates: start: 20111201, end: 20120306
  4. NORVASC [Suspect]
     Indication: HYPERTENSION
     Route: 065
     Dates: start: 20110901, end: 20120306

REACTIONS (9)
  - ARTHRALGIA [None]
  - TINNITUS [None]
  - PROSTATIC SPECIFIC ANTIGEN INCREASED [None]
  - PENILE SIZE REDUCED [None]
  - PARAESTHESIA [None]
  - EXPIRED DRUG ADMINISTERED [None]
  - HYPERTENSION [None]
  - DEAFNESS [None]
  - SKIN BURNING SENSATION [None]
